FAERS Safety Report 7902476-1 (Version None)
Quarter: 2011Q4

REPORT INFORMATION
  Report Type: 
  Country: None (occurrence: None)
  Receive Date: 20111108
  Receipt Date: 20111104
  Transmission Date: 20120403
  Serious: Yes (Death)
  Sender: FDA-Public Use
  Company Number: US-CELGENEUS-163-21880-11110704

PATIENT
  Sex: Male

DRUGS (11)
  1. BENAZEPRIL HYDROCHLORIDE [Concomitant]
     Dosage: 10 MILLIGRAM
     Route: 065
  2. HYDROCHLOROTHIAZIDE [Concomitant]
     Dosage: 12.5 MILLIGRAM
     Route: 065
  3. METFFORMIN HYDROCHLORIDE [Concomitant]
     Dosage: 500 MILLIGRAM
     Route: 065
  4. ACTONEL [Concomitant]
     Dosage: 5 MILLIGRAM
     Route: 065
  5. CENTRUM SILVER [Concomitant]
     Route: 065
  6. GLYBURIDE [Concomitant]
     Dosage: 1.25 MILLIGRAM
     Route: 065
  7. FERROUS SULFATE TAB [Concomitant]
     Route: 065
  8. REVLIMID [Suspect]
     Indication: MYELODYSPLASTIC SYNDROME
     Dosage: 10 MILLIGRAM
     Route: 048
     Dates: start: 20100716
  9. FISH OIL [Concomitant]
     Dosage: 1000 MILLIGRAM
     Route: 065
  10. SIMVASTATIN [Concomitant]
     Dosage: 5 MILLIGRAM
     Route: 065
  11. ISOSORBIDE MONONITRATE [Concomitant]
     Dosage: 10 MILLIGRAM
     Route: 065

REACTIONS (1)
  - DEATH [None]
